FAERS Safety Report 14133080 (Version 2)
Quarter: 2018Q1

REPORT INFORMATION
  Report Type: Report from Study
  Country: US (occurrence: US)
  Receive Date: 20171026
  Receipt Date: 20180118
  Transmission Date: 20180508
  Serious: Yes (Death, Hospitalization)
  Sender: FDA-Public Use
  Company Number: US-ACTELION-A-NJ2017-161413

PATIENT
  Age: 85 Year
  Sex: Female
  Weight: 80.73 kg

DRUGS (2)
  1. TRACLEER [Suspect]
     Active Substance: BOSENTAN
     Indication: PULMONARY HYPERTENSION
     Dosage: 125 MG, BID
     Route: 048
  2. SILDENAFIL CITRATE. [Concomitant]
     Active Substance: SILDENAFIL CITRATE

REACTIONS (11)
  - Oedema [Unknown]
  - Fall [Unknown]
  - Pneumonia [Unknown]
  - Sickle cell anaemia with crisis [Unknown]
  - Palpitations [Unknown]
  - Dyspnoea [Unknown]
  - Syncope [Unknown]
  - Dizziness [Unknown]
  - Fatigue [Unknown]
  - Death [Fatal]
  - Condition aggravated [Unknown]

NARRATIVE: CASE EVENT DATE: 20180106
